FAERS Safety Report 9927711 (Version 1)
Quarter: 2014Q1

REPORT INFORMATION
  Report Type: Spontaneous
  Country: US (occurrence: US)
  Receive Date: 20140227
  Receipt Date: 20140227
  Transmission Date: 20141002
  Serious: Yes (Other)
  Sender: FDA-Public Use
  Company Number: US-ROCHE-1356069

PATIENT
  Age: 19 Year
  Sex: Male

DRUGS (1)
  1. XOLAIR [Suspect]
     Indication: ASTHMA
     Dosage: LAST DOSE WAS ON 19/FEB/2014.
     Route: 065
     Dates: start: 200612

REACTIONS (1)
  - Convulsion [Recovered/Resolved]
